FAERS Safety Report 12961162 (Version 3)
Quarter: 2017Q1

REPORT INFORMATION
  Report Type: Spontaneous
  Country: US (occurrence: US)
  Receive Date: 20161121
  Receipt Date: 20170113
  Transmission Date: 20170428
  Serious: No
  Sender: FDA-Public Use
  Company Number: US-PFIZER INC-2016529425

PATIENT
  Age: 63 Year
  Sex: Female

DRUGS (1)
  1. IBRANCE [Suspect]
     Active Substance: PALBOCICLIB
     Indication: BREAST CANCER
     Dosage: 125 MG, CYCLIC (DAILY FOR 3 WEEKS ON, AND 1 WEEK OFF)
     Route: 048
     Dates: start: 201611, end: 20161212

REACTIONS (2)
  - Stomatitis [Recovering/Resolving]
  - Oral viral infection [Unknown]

NARRATIVE: CASE EVENT DATE: 201611
